FAERS Safety Report 17536753 (Version 1)
Quarter: 2020Q1

REPORT INFORMATION
  Report Type: Spontaneous
  Country: US (occurrence: US)
  Receive Date: 20200313
  Receipt Date: 20200313
  Transmission Date: 20200409
  Serious: Yes (Death, Life-Threatening, Other)
  Sender: FDA-Public Use
  Company Number: US-ALKEM LABORATORIES LIMITED-US-ALKEM-2020-00582

PATIENT
  Age: 86 Year
  Sex: Female

DRUGS (3)
  1. CEFUROXIME AXETIL. [Suspect]
     Active Substance: CEFUROXIME AXETIL
     Indication: SINUSITIS
     Dosage: UNK
     Route: 065
  2. AMLODIPINE [Concomitant]
     Active Substance: AMLODIPINE BESYLATE
     Indication: HYPERTENSION
     Dosage: UNK
     Route: 065
  3. ROSUVASTATIN. [Concomitant]
     Active Substance: ROSUVASTATIN
     Indication: HYPERLIPIDAEMIA
     Dosage: UNK
     Route: 065

REACTIONS (7)
  - Ocular icterus [Unknown]
  - Cardiac arrest [Fatal]
  - Thrombocytopenia [Not Recovered/Not Resolved]
  - Atrioventricular block first degree [Unknown]
  - Thrombotic thrombocytopenic purpura [Unknown]
  - Hypoaesthesia [Unknown]
  - Troponin I increased [Unknown]
